APPROVED DRUG PRODUCT: PFIZERPEN G
Active Ingredient: PENICILLIN G POTASSIUM
Strength: 400,000 UNITS/5ML
Dosage Form/Route: FOR SOLUTION;ORAL
Application: A060587 | Product #001
Applicant: PFIZER LABORATORIES DIV PFIZER INC
Approved: Approved Prior to Jan 1, 1982 | RLD: No | RS: No | Type: DISCN